FAERS Safety Report 21925127 (Version 1)
Quarter: 2023Q1

REPORT INFORMATION
  Report Type: Spontaneous
  Country: US (occurrence: US)
  Receive Date: 20230130
  Receipt Date: 20230130
  Transmission Date: 20230418
  Serious: No
  Sender: FDA-Public Use
  Company Number: US-SANOFI-01458373

PATIENT
  Weight: 144 kg

DRUGS (1)
  1. CEREZYME [Suspect]
     Active Substance: IMIGLUCERASE
     Dosage: 60 MG/KG, QOW
     Route: 042

REACTIONS (1)
  - Weight increased [Not Recovered/Not Resolved]
